FAERS Safety Report 5676981-5 (Version None)
Quarter: 2008Q1

REPORT INFORMATION
  Report Type: 
  Country: None (occurrence: None)
  Receive Date: 20080324
  Receipt Date: 20080320
  Transmission Date: 20080703
  Serious: Yes (Death, Life-Threatening)
  Sender: FDA-Public Use
  Company Number: DE-AVENTIS-200710306DE

PATIENT
  Age: 75 Year
  Sex: Male
  Weight: 96 kg

DRUGS (18)
  1. CODE UNBROKEN [Suspect]
     Indication: PROPHYLAXIS
     Dosage: DOSE: NOT APPLICABLE
  2. DOCETAXEL [Suspect]
     Indication: NON-SMALL CELL LUNG CANCER
     Route: 042
     Dates: start: 20070202, end: 20070202
  3. CARBOPLATIN [Suspect]
     Indication: NON-SMALL CELL LUNG CANCER
     Route: 042
     Dates: start: 20070202, end: 20070202
  4. ONDANSETRON [Concomitant]
     Indication: CHEMOTHERAPY
     Route: 042
     Dates: start: 20070202, end: 20070202
  5. FORTECORTIN                        /00016001/ [Concomitant]
     Indication: CHEMOTHERAPY
     Route: 042
     Dates: start: 20070202, end: 20070202
  6. CLOPIDOGREL [Concomitant]
     Indication: DRUG USE FOR UNKNOWN INDICATION
     Dosage: DOSE: NOT REPORTED
  7. ASPIRIN [Concomitant]
     Indication: DRUG USE FOR UNKNOWN INDICATION
  8. ARELIX [Concomitant]
     Dosage: DOSE: 1-1-0
  9. LASIX [Concomitant]
     Dosage: DOSE: NOT REPORTED
  10. CONCOR                             /00802602/ [Concomitant]
     Dosage: DOSE: NOT REPORTED
  11. ZOCOR [Concomitant]
     Indication: DRUG USE FOR UNKNOWN INDICATION
     Dosage: DOSE: 0-0-2
  12. NEXIUM [Concomitant]
     Indication: DRUG USE FOR UNKNOWN INDICATION
     Dosage: DOSE: 1-0-0
  13. RIOPAN                             /00141701/ [Concomitant]
     Indication: DRUG USE FOR UNKNOWN INDICATION
     Dosage: DOSE: 1-1-1
  14. AVELOX [Concomitant]
     Indication: DRUG USE FOR UNKNOWN INDICATION
     Dosage: DOSE: 1-0-0
  15. MOVICOL                            /01053601/ [Concomitant]
     Indication: DRUG USE FOR UNKNOWN INDICATION
     Dosage: DOSE: 1-1-1
  16. UNKNOWN DRUG [Concomitant]
     Indication: DRUG USE FOR UNKNOWN INDICATION
     Dosage: DOSE: NOT REPORTED
  17. UNACID                             /00917901/ [Concomitant]
     Indication: DRUG USE FOR UNKNOWN INDICATION
     Dosage: DOSE: 1-1-1
     Dates: start: 20070316
  18. CLEXANE [Concomitant]
     Dosage: DOSE: 1-0-0

REACTIONS (15)
  - CEREBRAL ATROPHY [None]
  - CEREBRAL INFARCTION [None]
  - CIRCULATORY COLLAPSE [None]
  - CORONARY ARTERY DISEASE [None]
  - CORONARY ARTERY OCCLUSION [None]
  - CORONARY ARTERY STENOSIS [None]
  - CYANOSIS [None]
  - DEATH [None]
  - DISEASE RECURRENCE [None]
  - HYPERTENSION [None]
  - NERVOUS SYSTEM DISORDER [None]
  - NEUROLOGICAL EXAMINATION ABNORMAL [None]
  - RENAL FAILURE [None]
  - SINUSITIS [None]
  - STAPHYLOCOCCAL INFECTION [None]
